FAERS Safety Report 4773959-0 (Version None)
Quarter: 2005Q3

REPORT INFORMATION
  Report Type: 
  Country: None (occurrence: None)
  Receive Date: 20050919
  Receipt Date: 20050909
  Transmission Date: 20060218
  Serious: Yes (Life-Threatening)
  Sender: FDA-Public Use
  Company Number: MEDI-0003682

PATIENT
  Age: 55 Year
  Sex: Male
  Weight: 70.3075 kg

DRUGS (15)
  1. ETHYOL [Suspect]
     Indication: RADIOTHERAPY
     Dosage: 500 M G, 5 IN 1 WK, SUBCUTANEOUS
     Route: 058
     Dates: start: 20050725, end: 20050824
  2. RADIATION THERAPY [Concomitant]
  3. DIFLUCAN [Concomitant]
  4. AMBIEN (ZOLPIDAM TARTRATE) [Concomitant]
  5. MAALOX (MAGNESIUM HYDROXIDE, ALUMINIUM HYDROXIDE GEL) [Concomitant]
  6. BENADRYL [Concomitant]
  7. LIDOCAINE HCL INJ [Concomitant]
  8. COMPAZINE [Concomitant]
  9. ZOFRAN [Concomitant]
  10. VICODIN [Concomitant]
  11. ATIVAN [Concomitant]
  12. BENADRYL [Concomitant]
  13. DECADRON [Concomitant]
  14. HALDOL [Concomitant]
  15. REGLAN [Concomitant]

REACTIONS (6)
  - CHILLS [None]
  - HEPATIC STEATOSIS [None]
  - JAUNDICE [None]
  - NAUSEA [None]
  - PYREXIA [None]
  - VOMITING [None]
